FAERS Safety Report 5303119-6 (Version None)
Quarter: 2007Q2

REPORT INFORMATION
  Report Type: 
  Country: None (occurrence: None)
  Receive Date: 20070420
  Receipt Date: 20070406
  Transmission Date: 20071010
  Serious: Yes (Other)
  Sender: FDA-Public Use
  Company Number: PHEH2007US04495

PATIENT
  Age: 71 Week
  Sex: Female

DRUGS (2)
  1. ZELNORM [Suspect]
     Indication: IRRITABLE BOWEL SYNDROME
     Dosage: UNK, BID
     Dates: start: 20040101, end: 20070402
  2. BENICAR [Concomitant]
     Dosage: UNK, UNK

REACTIONS (3)
  - ANAEMIA [None]
  - HAEMORRHOIDAL HAEMORRHAGE [None]
  - HEART RATE IRREGULAR [None]
